FAERS Safety Report 4818630-1 (Version None)
Quarter: 2005Q4

REPORT INFORMATION
  Report Type: 
  Country: None (occurrence: None)
  Receive Date: 20051101
  Receipt Date: 20051024
  Transmission Date: 20060501
  Serious: Yes (Hospitalization, Other)
  Sender: FDA-Public Use
  Company Number: 200513651GDS

PATIENT
  Age: 72 Year
  Sex: Female
  Weight: 49.8957 kg

DRUGS (4)
  1. AVELOX [Suspect]
  2. SPIRIVA [Concomitant]
  3. ADVAIR DISKUS 100/50 [Concomitant]
  4. CALCIUM SUPPLEMENT [Concomitant]

REACTIONS (6)
  - ANAPHYLACTIC REACTION [None]
  - APHONIA [None]
  - ASPARTATE AMINOTRANSFERASE INCREASED [None]
  - HYPERGLYCAEMIA [None]
  - LARYNGITIS [None]
  - WHITE BLOOD CELL COUNT INCREASED [None]
